FAERS Safety Report 8437868 (Version 7)
Quarter: 2018Q2

REPORT INFORMATION
  Report Type: Report from Study
  Country: KR (occurrence: KR)
  Receive Date: 20120302
  Receipt Date: 20180421
  Transmission Date: 20180711
  Serious: Yes (Hospitalization, Other)
  Sender: FDA-Public Use
  Company Number: KR-ROCHE-1039711

PATIENT
  Age: 62 Year
  Sex: Female
  Weight: 48.7 kg

DRUGS (18)
  1. CAPECITABINE. [Suspect]
     Active Substance: CAPECITABINE
     Dosage: DOSE REDUCTION OF 50%., LAST DOSE PRIOR TO SAE ON 13/APR/2012
     Route: 048
     Dates: start: 20120413, end: 20120419
  2. PIOGLITAZONE. [Concomitant]
     Active Substance: PIOGLITAZONE
     Route: 065
     Dates: start: 20020510
  3. THIOCTIC ACID [Concomitant]
     Active Substance: THIOCTIC ACID
     Route: 065
     Dates: start: 20020510
  4. ATORVASTATIN [Concomitant]
     Active Substance: ATORVASTATIN
     Route: 065
     Dates: start: 20020510
  5. METFORMIN [Concomitant]
     Active Substance: METFORMIN HYDROCHLORIDE
     Route: 065
     Dates: start: 20120106
  6. DOCETAXEL. [Suspect]
     Active Substance: DOCETAXEL
     Dosage: 4 TH CYCLE, LAST DOSE PRIOR TO SAE ON 13/APR/2012
     Route: 065
     Dates: start: 20120413
  7. ARTEMISIA ASIATICA [Concomitant]
     Active Substance: HERBALS
     Route: 065
     Dates: start: 20120125
  8. DOCETAXEL. [Suspect]
     Active Substance: DOCETAXEL
     Indication: GASTRIC CANCER
     Dosage: 90 MG ON CYCLE 1 AND 2
     Route: 042
     Dates: start: 20120114
  9. DOCETAXEL. [Suspect]
     Active Substance: DOCETAXEL
     Dosage: DOSE REDUCTION OF 25%
     Route: 042
     Dates: start: 20120323
  10. METFORMIN [Concomitant]
     Active Substance: METFORMIN HYDROCHLORIDE
     Route: 065
     Dates: start: 20020510
  11. GLIMEPIRIDE. [Concomitant]
     Active Substance: GLIMEPIRIDE
     Route: 065
     Dates: start: 20020510
  12. BEVACIZUMAB. [Suspect]
     Active Substance: BEVACIZUMAB
     Indication: GASTRIC CANCER
     Dosage: LAST DOSE PRIOR TO SAE ON 13/APR/2012
     Route: 042
     Dates: start: 20120114
  13. CAPECITABINE. [Suspect]
     Active Substance: CAPECITABINE
     Indication: GASTRIC CANCER
     Route: 048
     Dates: start: 20120114, end: 20120210
  14. CAPECITABINE. [Suspect]
     Active Substance: CAPECITABINE
     Route: 048
     Dates: start: 20120203, end: 20120217
  15. CISPLATIN. [Suspect]
     Active Substance: CISPLATIN
     Indication: GASTRIC CANCER
     Dosage: LAST DOSE PRIOR TO SAE ON 13/APR/2012
     Route: 042
     Dates: start: 20120114
  16. MEGESTROL ACETATE. [Concomitant]
     Active Substance: MEGESTROL ACETATE
     Route: 065
     Dates: start: 20120114
  17. SUCRALFATE. [Concomitant]
     Active Substance: SUCRALFATE
     Route: 065
     Dates: start: 20120125
  18. CAPECITABINE. [Suspect]
     Active Substance: CAPECITABINE
     Dosage: 25% DOSE REDUCTION
     Route: 048
     Dates: start: 20120323, end: 20120331

REACTIONS (4)
  - Enteritis [Recovered/Resolved]
  - Febrile neutropenia [Recovered/Resolved]
  - Febrile neutropenia [Recovered/Resolved]
  - Gastrointestinal perforation [Recovered/Resolved]

NARRATIVE: CASE EVENT DATE: 20120210
